FAERS Safety Report 9477753 (Version 2)
Quarter: 2013Q3

REPORT INFORMATION
  Report Type: Spontaneous
  Country: CM (occurrence: CM)
  Receive Date: 20130827
  Receipt Date: 20130920
  Transmission Date: 20140515
  Serious: Yes (Death, Hospitalization, Other)
  Sender: FDA-Public Use
  Company Number: CM-009507513-1308CMR009784

PATIENT
  Age: 70 Year
  Sex: Male
  Weight: 70 kg

DRUGS (2)
  1. MECTIZAN [Suspect]
     Indication: FILARIASIS LYMPHATIC
     Dosage: 4 TABLETS
     Route: 048
     Dates: start: 20130719, end: 20130719
  2. ALBENDAZOLE [Suspect]
     Dosage: 1 TABLET
     Route: 048
     Dates: start: 20130719, end: 20130719

REACTIONS (9)
  - Death [Fatal]
  - Anaemia [Unknown]
  - Encephalopathy [Recovering/Resolving]
  - Pyrexia [Recovering/Resolving]
  - Abnormal behaviour [Recovering/Resolving]
  - Aphasia [Recovering/Resolving]
  - Palpitations [Recovering/Resolving]
  - Diarrhoea [Recovering/Resolving]
  - Asthenia [Not Recovered/Not Resolved]
